FAERS Safety Report 8302677-7 (Version None)
Quarter: 2012Q2

REPORT INFORMATION
  Report Type: 
  Country: None (occurrence: None)
  Receive Date: 20120420
  Receipt Date: 20120413
  Transmission Date: 20120825
  Serious: Yes (Life-Threatening, Other)
  Sender: FDA-Public Use
  Company Number: TW-ROXANE LABORATORIES, INC.-2012-RO-01065RO

PATIENT
  Age: 27 Year
  Sex: Female

DRUGS (4)
  1. QUETIAPINE FUMARATE [Suspect]
     Indication: MANIA
     Dosage: 400 MG
  2. VALPROIC ACID [Suspect]
     Indication: MANIA
     Dosage: 1000 MG
  3. OLANZAPINE [Suspect]
     Indication: MANIA
     Dosage: 20 MG
  4. LITHIUM CARBONATE [Suspect]
     Indication: MANIA
     Dosage: 900 MG

REACTIONS (4)
  - LEUKOPENIA [None]
  - NEUTROPENIA [None]
  - DRUG RASH WITH EOSINOPHILIA AND SYSTEMIC SYMPTOMS [None]
  - THROMBOCYTOPENIA [None]
